FAERS Safety Report 11649599 (Version 4)
Quarter: 2018Q2

REPORT INFORMATION
  Report Type: Spontaneous
  Country: US (occurrence: US)
  Receive Date: 20151021
  Receipt Date: 20180529
  Transmission Date: 20180711
  Serious: Yes (Hospitalization, Other)
  Sender: FDA-Public Use
  Company Number: US-DSJP-DSU-2015-121626

PATIENT

DRUGS (2)
  1. AZOR [Suspect]
     Active Substance: AMLODIPINE BESYLATE\OLMESARTAN MEDOXOMIL
     Indication: HYPERTENSION
     Dosage: 5/20 MG, QD
     Dates: start: 20090108, end: 20110604
  2. BENICAR [Suspect]
     Active Substance: OLMESARTAN MEDOXOMIL
     Indication: HYPERTENSION
     Dosage: 20 MG, UNK
     Dates: start: 20110114, end: 20140130

REACTIONS (16)
  - Diverticulitis [Unknown]
  - Dyspnoea [Unknown]
  - Haemorrhoids thrombosed [Recovered/Resolved]
  - Urinary tract infection [Unknown]
  - Hydroureter [Unknown]
  - Pancreatitis [Unknown]
  - Dizziness [Unknown]
  - Kidney infection [Unknown]
  - Gastrooesophageal reflux disease [Unknown]
  - Nephrolithiasis [Unknown]
  - Arthralgia [Unknown]
  - Sprue-like enteropathy [Not Recovered/Not Resolved]
  - Hydronephrosis [Unknown]
  - Crohn^s disease [Not Recovered/Not Resolved]
  - Irritable bowel syndrome [Unknown]
  - Faeces discoloured [Unknown]

NARRATIVE: CASE EVENT DATE: 2009
